FAERS Safety Report 21559855 (Version 1)
Quarter: 2022Q4

REPORT INFORMATION
  Report Type: Spontaneous
  Country: US (occurrence: US)
  Receive Date: 20221107
  Receipt Date: 20221107
  Transmission Date: 20230113
  Serious: No
  Sender: FDA-Public Use
  Company Number: US-GSK-US2022AMR157552

PATIENT
  Age: 14 Year
  Sex: Female

DRUGS (1)
  1. BENLYSTA [Suspect]
     Active Substance: BELIMUMAB
     Indication: Systemic lupus erythematosus
     Dosage: UNK, 3 TIMES EVERY 2 WEEK
     Route: 042

REACTIONS (4)
  - Rash [Unknown]
  - Rash papular [Unknown]
  - Condition aggravated [Unknown]
  - Acne [Unknown]
